FAERS Safety Report 18071790 (Version 1)
Quarter: 2020Q3

REPORT INFORMATION
  Report Type: Spontaneous
  Country: US (occurrence: US)
  Receive Date: 20200727
  Receipt Date: 20200727
  Transmission Date: 20201103
  Serious: No
  Sender: FDA-Public Use
  Company Number: US-AMNEAL PHARMACEUTICALS-2020-AMRX-01182

PATIENT
  Age: 13 Year
  Sex: Female
  Weight: 49.8 kg

DRUGS (1)
  1. ISOTRETINOIN. [Suspect]
     Active Substance: ISOTRETINOIN
     Indication: ACNE
     Dosage: 40 MILLIGRAM, DAILY 1 BOX WITH 30 CAPSULES
     Route: 048
     Dates: start: 20191124

REACTIONS (5)
  - Lip haemorrhage [Recovering/Resolving]
  - Lip dry [Recovering/Resolving]
  - Rash [Recovering/Resolving]
  - Cheilitis [Recovering/Resolving]
  - Chapped lips [Recovering/Resolving]

NARRATIVE: CASE EVENT DATE: 202002
